FAERS Safety Report 4553125-4 (Version None)
Quarter: 2005Q1

REPORT INFORMATION
  Report Type: 
  Country: None (occurrence: None)
  Receive Date: 20050114
  Receipt Date: 20050103
  Transmission Date: 20050727
  Serious: Yes (Hospitalization)
  Sender: FDA-Public Use
  Company Number: DE-JNJFOC-20050100914

PATIENT
  Age: 53 Year
  Sex: Male

DRUGS (7)
  1. RISPERDAL [Suspect]
     Route: 049
  2. RISPERDAL [Suspect]
     Indication: DRUG USE FOR UNKNOWN INDICATION
     Route: 049
  3. ABILIFY [Interacting]
     Route: 049
  4. ABILIFY [Interacting]
     Indication: DRUG USE FOR UNKNOWN INDICATION
     Route: 049
  5. EUNERPAN [Interacting]
     Indication: DRUG USE FOR UNKNOWN INDICATION
     Route: 049
  6. ENAHEXAL [Concomitant]
     Route: 049
  7. HCT HEXAL [Concomitant]
     Route: 049

REACTIONS (6)
  - CONFUSIONAL STATE [None]
  - DISTURBANCE IN ATTENTION [None]
  - DRUG INTERACTION [None]
  - MENTAL DISORDER [None]
  - RESTLESSNESS [None]
  - SLEEP DISORDER [None]
